FAERS Safety Report 5153971-2 (Version None)
Quarter: 2006Q4

REPORT INFORMATION
  Report Type: 
  Country: None (occurrence: None)
  Receive Date: 20061120
  Receipt Date: 20061106
  Transmission Date: 20070319
  Serious: Yes (Hospitalization)
  Sender: FDA-Public Use
  Company Number: DE-ROCHE-470269

PATIENT
  Age: 28 Year
  Sex: Female
  Weight: 63 kg

DRUGS (2)
  1. PEG-INTERFERON A-2A (RO 25-8310) [Suspect]
     Dosage: FORM = PRE-FILLED SYRINGE
     Route: 058
     Dates: start: 20060120
  2. RIBAVIRIN [Suspect]
     Route: 048
     Dates: start: 20060120

REACTIONS (1)
  - CONVULSION [None]
